FAERS Safety Report 7960383 (Version 5)
Quarter: 2012Q4

REPORT INFORMATION
  Report Type: Report from Study
  Country: DE (occurrence: DE)
  Receive Date: 20110525
  Receipt Date: 20121105
  Transmission Date: 20130627
  Serious: Yes (Death, Hospitalization, Other)
  Sender: FDA-Public Use
  Company Number: PHHY2011DE41054

PATIENT
  Age: 80 Year
  Sex: Female
  Weight: 76 kg

DRUGS (20)
  1. ZOLEDRONATE [Suspect]
     Indication: BONE DISORDER
     Dosage: 4 mg,
     Route: 042
     Dates: start: 20110408
  2. ZOLEDRONATE [Suspect]
     Dosage: 4 mg,
     Route: 042
     Dates: start: 20120104
  3. MELPHALAN [Concomitant]
     Dosage: UNK UKN, UNK
     Dates: start: 20110418
  4. BORTEZOMIB [Concomitant]
     Dosage: UNK UKN, UNK
     Dates: start: 20110418
  5. DELIX [Concomitant]
     Dosage: 10mg /day   2x
     Dates: start: 20110124
  6. NOVALGIN [Concomitant]
     Dosage: 500 mg, /day   4x
     Dates: start: 20110124
  7. PANTOZOL [Concomitant]
     Dosage: 20 mg,/day   2x
     Dates: start: 20110124
  8. DEXAMETHASON [Concomitant]
     Dosage: 8 mg, /day   3x
     Dates: start: 20110124
  9. DEXAMETHASON [Concomitant]
     Dosage: 8 mg, UNK
  10. TARGIN [Concomitant]
     Dosage: 1 DF, UNK
     Dates: start: 20110124
  11. MCP [Concomitant]
     Dosage: 20 drp, TID
     Dates: start: 20110124
  12. MCP [Concomitant]
     Route: 042
  13. FUROSEMIDE [Concomitant]
     Dosage: 2 DF, UNK
     Dates: start: 20110804
  14. COTRIM [Concomitant]
     Dosage: UNK UKN, UNK
     Dates: start: 20110804
  15. PREDNISOLON [Concomitant]
     Dosage: UNK UKN, UNK
     Route: 042
  16. RAMIPRIL [Concomitant]
     Route: 048
  17. OXYCODAN [Concomitant]
     Dosage: 10 mg, daily
     Route: 048
  18. FUROSEMIDE [Concomitant]
     Dosage: 40 mg, daily
     Route: 048
     Dates: start: 20110804
  19. TILIDINE [Concomitant]
     Dosage: 100 mg, daily
     Route: 048
  20. PANTOPRAZOLE [Concomitant]

REACTIONS (6)
  - Pneumonia [Fatal]
  - Renal failure [Fatal]
  - General physical health deterioration [Fatal]
  - Blood creatinine increased [Fatal]
  - Humerus fracture [Recovered/Resolved]
  - Pathological fracture [Unknown]
